FAERS Safety Report 8300796-2 (Version None)
Quarter: 2012Q2

REPORT INFORMATION
  Report Type: 
  Country: None (occurrence: None)
  Receive Date: 20120420
  Receipt Date: 20120418
  Transmission Date: 20120825
  Serious: Yes (Death)
  Sender: FDA-Public Use
  Company Number: PHEH2012US007689

PATIENT
  Sex: Female

DRUGS (4)
  1. RECLAST [Suspect]
     Dosage: 5 MG/100 ML
     Route: 042
     Dates: start: 20080219
  2. RECLAST [Suspect]
     Dosage: 5 MG/100 ML
     Route: 042
     Dates: start: 20090429
  3. RECLAST [Suspect]
     Dosage: 5 MG/100 ML
     Route: 042
     Dates: start: 20100507
  4. RECLAST [Suspect]
     Dosage: 5 MG/100 ML
     Route: 042
     Dates: start: 20110517

REACTIONS (1)
  - DEATH [None]
